FAERS Safety Report 6680717-9 (Version None)
Quarter: 2010Q2

REPORT INFORMATION
  Report Type: 
  Country: None (occurrence: None)
  Receive Date: 20100413
  Receipt Date: 20100413
  Transmission Date: 20101027
  Serious: Yes (Other)
  Sender: FDA-Public Use
  Company Number: None

PATIENT
  Sex: Female
  Weight: 59.4212 kg

DRUGS (2)
  1. CYMBALTA [Suspect]
     Indication: FIBROMYALGIA
     Dosage: 60MG DAILY  30 MG DAILY
     Dates: start: 20090707, end: 20100301
  2. CYMBALTA [Suspect]
     Indication: FIBROMYALGIA
     Dosage: 60MG DAILY  30 MG DAILY
     Dates: start: 20100302, end: 20100409

REACTIONS (14)
  - ABDOMINAL PAIN UPPER [None]
  - DISORIENTATION [None]
  - DIZZINESS [None]
  - DRUG EFFECT DECREASED [None]
  - FEELING ABNORMAL [None]
  - HEADACHE [None]
  - IRRITABILITY [None]
  - MALAISE [None]
  - MUSCULOSKELETAL PAIN [None]
  - NAUSEA [None]
  - NECK PAIN [None]
  - NIGHTMARE [None]
  - PARAESTHESIA [None]
  - WITHDRAWAL SYNDROME [None]
